FAERS Safety Report 5196811-8 (Version None)
Quarter: 2006Q4

REPORT INFORMATION
  Report Type: 
  Country: None (occurrence: None)
  Receive Date: 20061229
  Receipt Date: 20061229
  Transmission Date: 20070319
  Serious: No
  Sender: FDA-Public Use
  Company Number: None

PATIENT
  Age: 37 Year
  Sex: Male

DRUGS (3)
  1. ZYRTEC [Suspect]
     Dosage: TABLETS
  2. ZYPREXA [Suspect]
     Dosage: TABLETS
  3. . [Concomitant]

REACTIONS (4)
  - ADVERSE DRUG REACTION [None]
  - DRUG DISPENSING ERROR [None]
  - MEDICATION ERROR [None]
  - WRONG DRUG ADMINISTERED [None]
